FAERS Safety Report 16882158 (Version 1)
Quarter: 2019Q4

REPORT INFORMATION
  Report Type: Spontaneous
  Country: US (occurrence: US)
  Receive Date: 20191003
  Receipt Date: 20191003
  Transmission Date: 20200122
  Serious: No
  Sender: FDA-Public Use
  Company Number: US-ALNYLAM PHARMACEUTICALS, INC.-ALN-2019-000119

PATIENT
  Age: 62 Year
  Sex: Male
  Weight: 89.5 kg

DRUGS (4)
  1. METHYLPREDNISOLONE. [Concomitant]
     Active Substance: METHYLPREDNISOLONE
     Indication: PROPHYLAXIS
     Dosage: 120 UNK
     Route: 042
  2. ONPATTRO [Suspect]
     Active Substance: PATISIRAN SODIUM
     Indication: HEREDITARY NEUROPATHIC AMYLOIDOSIS
     Dosage: UNK
     Route: 042
     Dates: start: 20190219
  3. RANITIDINE. [Concomitant]
     Active Substance: RANITIDINE
     Indication: PROPHYLAXIS
     Dosage: 50 UNK
     Route: 042
  4. DIPHENHYDRAMINE. [Concomitant]
     Active Substance: DIPHENHYDRAMINE
     Indication: PROPHYLAXIS
     Dosage: 50 UNK
     Route: 042

REACTIONS (6)
  - Infusion related reaction [Unknown]
  - Blood pressure decreased [Unknown]
  - Hyperhidrosis [Unknown]
  - Chest discomfort [Unknown]
  - Asthenia [Unknown]
  - Dyspnoea [Unknown]

NARRATIVE: CASE EVENT DATE: 20190219
